FAERS Safety Report 23471766 (Version 1)
Quarter: 2024Q1

REPORT INFORMATION
  Report Type: Report from Study
  Country: RS (occurrence: None)
  Receive Date: 20240202
  Receipt Date: 20240202
  Transmission Date: 20240410
  Serious: Yes (Life-Threatening)
  Sender: FDA-Public Use
  Company Number: 2024A025704

PATIENT
  Age: 57 Year
  Sex: Female
  Weight: 84 kg

DRUGS (1)
  1. SAPHNELO [Suspect]
     Active Substance: ANIFROLUMAB\ANIFROLUMAB-FNIA
     Indication: Systemic lupus erythematosus
     Route: 041
     Dates: start: 20231121, end: 20231121

REACTIONS (1)
  - Anaphylactic reaction [Recovered/Resolved]

NARRATIVE: CASE EVENT DATE: 20231121
